FAERS Safety Report 25368970 (Version 1)
Quarter: 2025Q2

REPORT INFORMATION
  Report Type: Spontaneous
  Country: US (occurrence: US)
  Receive Date: 20250528
  Receipt Date: 20250528
  Transmission Date: 20250716
  Serious: Yes (Other)
  Sender: ABBVIE
  Company Number: US-ABBVIE-6297210

PATIENT
  Age: 42 Year
  Sex: Female
  Weight: 68.2 kg

DRUGS (1)
  1. HUMIRA [Suspect]
     Active Substance: ADALIMUMAB
     Indication: Crohn^s disease
     Route: 058
     Dates: start: 2016

REACTIONS (10)
  - Cholecystitis [Recovered/Resolved]
  - Crohn^s disease [Recovered/Resolved with Sequelae]
  - Intestinal stenosis [Recovered/Resolved]
  - Red blood cell count increased [Recovering/Resolving]
  - Mean cell haemoglobin decreased [Recovering/Resolving]
  - Abdominal pain upper [Recovered/Resolved]
  - Red cell distribution width increased [Recovering/Resolving]
  - Drug ineffective [Not Recovered/Not Resolved]
  - Mean cell haemoglobin concentration decreased [Recovering/Resolving]
  - Mean cell volume decreased [Recovering/Resolving]

NARRATIVE: CASE EVENT DATE: 20241026
